FAERS Safety Report 9718649 (Version 1)
Quarter: 2013Q4

REPORT INFORMATION
  Report Type: Spontaneous
  Country: US (occurrence: US)
  Receive Date: 20131125
  Receipt Date: 20131125
  Transmission Date: 20140711
  Serious: No
  Sender: FDA-Public Use
  Company Number: US-VIVUS-2013V1000031

PATIENT
  Sex: Female

DRUGS (2)
  1. QSYMIA 3.75MG/23MG [Suspect]
     Indication: OBESITY
     Dosage: DAILY DOSE: 1 CAPSULE,
     Route: 048
  2. QSYMIA 3.75MG/23MG [Suspect]
     Dosage: DAILY DOSE: 1 CAPSULE,
     Route: 048

REACTIONS (4)
  - Hallucination, visual [Recovered/Resolved]
  - Bone pain [Recovered/Resolved]
  - Insomnia [Recovered/Resolved]
  - Nausea [Recovered/Resolved]
